FAERS Safety Report 6702862-1 (Version None)
Quarter: 2010Q2

REPORT INFORMATION
  Report Type: 
  Country: None (occurrence: None)
  Receive Date: 20100429
  Receipt Date: 20100429
  Transmission Date: 20101027
  Serious: Yes (Life-Threatening, Hospitalization)
  Sender: FDA-Public Use
  Company Number: None

PATIENT
  Age: 76 Year
  Sex: Male
  Weight: 65.8 kg

DRUGS (1)
  1. DIGOXIN [Suspect]
     Indication: CARDIAC FAILURE CONGESTIVE
     Dosage: 0.125MG ALTERNATING WITH 0.25MG OTHER PO
     Route: 048
     Dates: end: 20090203

REACTIONS (3)
  - BRADYCARDIA [None]
  - HYPOTENSION [None]
  - PALPITATIONS [None]
